FAERS Safety Report 10089957 (Version 4)
Quarter: 2014Q2

REPORT INFORMATION
  Report Type: Spontaneous
  Country: US (occurrence: None)
  Receive Date: 20140417
  Receipt Date: 20140523
  Transmission Date: 20141212
  Serious: Yes (Hospitalization, Other)
  Sender: FDA-Public Use
  Company Number: 2014SGN00328

PATIENT
  Age: 35 Year
  Sex: Female
  Weight: 38 kg

DRUGS (2)
  1. ADCETRIS [Suspect]
     Indication: HODGKIN^S DISEASE
     Route: 042
     Dates: start: 20130822, end: 20140307
  2. POSACONAZOLE (POSACONAZOLE) [Concomitant]

REACTIONS (9)
  - Convulsion [None]
  - Progressive multifocal leukoencephalopathy [None]
  - Status epilepticus [None]
  - Blood potassium decreased [None]
  - Haemoglobin decreased [None]
  - Platelet count decreased [None]
  - Fatigue [None]
  - Subdural haematoma [None]
  - Subarachnoid haemorrhage [None]
